FAERS Safety Report 19511480 (Version 1)
Quarter: 2021Q3

REPORT INFORMATION
  Report Type: Spontaneous
  Country: US (occurrence: US)
  Receive Date: 20210709
  Receipt Date: 20210709
  Transmission Date: 20211014
  Serious: No
  Sender: FDA-Public Use
  Company Number: US-TEVA-2021-US-1930691

PATIENT
  Sex: Male

DRUGS (1)
  1. AUSTEDO [Suspect]
     Active Substance: DEUTETRABENAZINE
     Indication: ILLNESS
     Dosage: 12 MILLIGRAM DAILY;
     Route: 048

REACTIONS (2)
  - Muscle twitching [Unknown]
  - Myalgia [Unknown]
